FAERS Safety Report 15984361 (Version 1)
Quarter: 2019Q1

REPORT INFORMATION
  Report Type: Report from Study
  Country: ES (occurrence: ES)
  Receive Date: 20190220
  Receipt Date: 20190220
  Transmission Date: 20190418
  Serious: Yes (Hospitalization, Other)
  Sender: FDA-Public Use
  Company Number: ES-ACCORD-108370

PATIENT
  Age: 85 Year
  Sex: Female

DRUGS (4)
  1. SEGURIL [Interacting]
     Active Substance: FUROSEMIDE
     Indication: PRODUCT USED FOR UNKNOWN INDICATION
     Dosage: 1/2-0-0
     Route: 048
     Dates: start: 20171030
  2. TRAMADOL (2389A) [Concomitant]
     Active Substance: TRAMADOL
     Route: 048
     Dates: start: 20171115, end: 20171123
  3. ENALAPRIL (2142A) [Concomitant]
     Active Substance: ENALAPRIL
     Dosage: 10 MG DAY
     Route: 048
     Dates: start: 20171030
  4. SPIRONOLACTONE (326A) [Suspect]
     Active Substance: SPIRONOLACTONE
     Indication: PRODUCT USED FOR UNKNOWN INDICATION
     Dosage: 25 MG DAY
     Route: 048
     Dates: start: 20171030

REACTIONS (4)
  - Confusional state [Recovered/Resolved]
  - Hyponatraemia [Recovered/Resolved]
  - Fall [Recovered/Resolved]
  - Drug interaction [Unknown]

NARRATIVE: CASE EVENT DATE: 20171116
